FAERS Safety Report 4294107-X (Version None)
Quarter: 2004Q1

REPORT INFORMATION
  Report Type: 
  Country: None (occurrence: None)
  Receive Date: 20040211
  Receipt Date: 20040128
  Transmission Date: 20041129
  Serious: Yes (Hospitalization)
  Sender: FDA-Public Use
  Company Number: K200400123

PATIENT
  Sex: Male

DRUGS (2)
  1. SKELAXIN [Suspect]
     Indication: BACK PAIN
     Dosage: UNK, UNK; ORAL
     Route: 048
  2. IBUPROFEN [Concomitant]

REACTIONS (2)
  - GRAND MAL CONVULSION [None]
  - OVERDOSE [None]
